FAERS Safety Report 8878991 (Version 2)
Quarter: 2012Q4

REPORT INFORMATION
  Report Type: 
  Country: US (occurrence: US)
  Receive Date: 20121026
  Receipt Date: 20121102
  Transmission Date: 20130627
  Serious: Yes (Hospitalization)
  Sender: FDA-Public Use
  Company Number: US-ACTELION-A-NJ2012-73441

PATIENT
  Age: 60 Year
  Sex: Male

DRUGS (3)
  1. VENTAVIS [Suspect]
     Indication: PORTOPULMONARY HYPERTENSION
     Dosage: UNK
     Route: 055
  2. VENTAVIS [Suspect]
     Dosage: UNK
     Route: 055
  3. SILDENAFIL [Concomitant]

REACTIONS (6)
  - Hepatic failure [Unknown]
  - Ammonia abnormal [Unknown]
  - Fall [Unknown]
  - Unresponsive to stimuli [Unknown]
  - Confusional state [Unknown]
  - Drug dose omission [Unknown]
